FAERS Safety Report 10003942 (Version 2)
Quarter: 2014Q1

REPORT INFORMATION
  Report Type: Spontaneous
  Country: US (occurrence: US)
  Receive Date: 20140312
  Receipt Date: 20140312
  Transmission Date: 20141002
  Serious: No
  Sender: FDA-Public Use
  Company Number: US-ABBVIE-13P-163-1136530-00

PATIENT
  Age: 43 Year
  Sex: Female
  Weight: 53.57 kg

DRUGS (1)
  1. DEPAKOTE [Suspect]
     Indication: BIPOLAR DISORDER
     Route: 048

REACTIONS (17)
  - Disorientation [Recovered/Resolved]
  - Phobia [Recovered/Resolved]
  - Feeling jittery [Recovered/Resolved]
  - Feeling hot [Not Recovered/Not Resolved]
  - Feeling jittery [Not Recovered/Not Resolved]
  - Phobia [Recovered/Resolved]
  - Insomnia [Unknown]
  - Agitation [Recovered/Resolved]
  - Anxiety [Recovered/Resolved]
  - Insomnia [Not Recovered/Not Resolved]
  - Anxiety [Recovered/Resolved]
  - Mania [Not Recovered/Not Resolved]
  - Pain [Not Recovered/Not Resolved]
  - Nervousness [Not Recovered/Not Resolved]
  - Irritability [Not Recovered/Not Resolved]
  - Drug ineffective [Unknown]
  - Product quality issue [Unknown]
